FAERS Safety Report 7133057-8 (Version None)
Quarter: 2010Q4

REPORT INFORMATION
  Report Type: 
  Country: None (occurrence: None)
  Receive Date: 20101202
  Receipt Date: 20101124
  Transmission Date: 20110411
  Serious: Yes (Hospitalization, Disabling)
  Sender: FDA-Public Use
  Company Number: B0565041A

PATIENT
  Sex: Male
  Weight: 72 kg

DRUGS (15)
  1. MELPHALAN HYDROCHLORIDE [Suspect]
     Indication: MULTIPLE MYELOMA
     Dosage: .2MGK PER DAY
     Route: 065
     Dates: start: 20090122
  2. THALIDOMIDE [Suspect]
     Indication: MULTIPLE MYELOMA
     Dosage: 100MG PER DAY
     Route: 048
     Dates: start: 20090122
  3. PREDNISONE [Suspect]
     Indication: MULTIPLE MYELOMA
     Dosage: 2MGK PER DAY
     Route: 065
     Dates: start: 20090122
  4. LASIX [Concomitant]
     Indication: HYPERTENSION
     Dosage: 25MG PER DAY
     Route: 048
     Dates: start: 20090122
  5. ZYLORIC [Concomitant]
     Dosage: 150MG PER DAY
     Route: 048
     Dates: start: 20090122, end: 20090203
  6. LOW MOLECULAR WEIGHT HEPARIN [Concomitant]
     Indication: THROMBOSIS PROPHYLAXIS
     Route: 058
     Dates: start: 20090122
  7. LANSOPRAZOLE [Concomitant]
     Dosage: 30MG PER DAY
     Route: 048
     Dates: start: 20090122
  8. LEXOTAN [Concomitant]
     Indication: ANXIETY
     Route: 048
     Dates: start: 20081230
  9. VALACYCLOVIR HYDROCHLORIDE [Concomitant]
     Indication: ANTIVIRAL PROPHYLAXIS
     Dosage: 1G PER DAY
     Route: 048
     Dates: start: 20090122, end: 20090203
  10. BACTRIM [Concomitant]
     Dosage: 800MG TWO TIMES PER WEEK
     Route: 048
     Dates: start: 20090124, end: 20090203
  11. XATRAL [Concomitant]
     Dosage: 10MG PER DAY
     Route: 048
     Dates: start: 20081101
  12. ADALAT [Concomitant]
     Indication: HYPERTENSION
     Dosage: 30MG PER DAY
     Route: 048
     Dates: start: 20080701
  13. RED BLOOD CELLS [Concomitant]
     Dosage: 1IU PER DAY
  14. ASPIRIN [Concomitant]
     Indication: PROPHYLAXIS
     Dosage: 100MG PER DAY
     Route: 048
     Dates: start: 20080701, end: 20090121
  15. HYDRATION [Concomitant]
     Route: 042

REACTIONS (3)
  - DIARRHOEA [None]
  - PANCYTOPENIA [None]
  - RENAL FAILURE [None]
